FAERS Safety Report 24921931 (Version 1)
Quarter: 2025Q1

REPORT INFORMATION
  Report Type: Spontaneous
  Country: JP (occurrence: JP)
  Receive Date: 20250204
  Receipt Date: 20250204
  Transmission Date: 20250409
  Serious: Yes (Other)
  Sender: RANBAXY
  Company Number: JP-SUN PHARMACEUTICAL INDUSTRIES LTD-2025R1-491666

PATIENT
  Age: 45 Year
  Sex: Female

DRUGS (6)
  1. METHOTREXATE [Suspect]
     Active Substance: METHOTREXATE
     Indication: Immunosuppressant drug therapy
     Dosage: 6 MILLIGRAM, WEEKLY
     Route: 065
  2. METHOTREXATE [Suspect]
     Active Substance: METHOTREXATE
     Dosage: 8 MILLIGRAM, WEEKLY
     Route: 065
  3. PREDNISOLONE [Suspect]
     Active Substance: PREDNISOLONE
     Indication: Immunosuppressant drug therapy
     Dosage: 10 MILLIGRAM, DAILY
     Route: 048
  4. PREDNISOLONE [Suspect]
     Active Substance: PREDNISOLONE
     Dosage: 30 MILLIGRAM, DAILY
     Route: 048
  5. PREDNISOLONE [Suspect]
     Active Substance: PREDNISOLONE
     Dosage: 40 MILLIGRAM, DAILY
     Route: 048
  6. TACROLIMUS [Suspect]
     Active Substance: TACROLIMUS
     Indication: Immunosuppressant drug therapy
     Dosage: 3 MILLIGRAM, DAILY
     Route: 065

REACTIONS (3)
  - Haemophagocytic lymphohistiocytosis [Recovering/Resolving]
  - Histoplasmosis disseminated [Recovering/Resolving]
  - Panniculitis [Recovering/Resolving]
